FAERS Safety Report 10963873 (Version 2)
Quarter: 2015Q2

REPORT INFORMATION
  Report Type: Spontaneous
  Country: US (occurrence: US)
  Receive Date: 20150328
  Receipt Date: 20150524
  Transmission Date: 20150821
  Serious: No
  Sender: FDA-Public Use
  Company Number: US-JNJFOC-20140508904

PATIENT
  Sex: Female
  Weight: 83.92 kg

DRUGS (1)
  1. DURAGESIC [Suspect]
     Active Substance: FENTANYL
     Indication: PAIN
     Dosage: 25MCG+12.5 UG/HR
     Route: 062
     Dates: start: 2012

REACTIONS (1)
  - Pain [Not Recovered/Not Resolved]
